FAERS Safety Report 18811405 (Version 1)
Quarter: 2021Q1

REPORT INFORMATION
  Report Type: Report from Study
  Country: FR (occurrence: FR)
  Receive Date: 20210129
  Receipt Date: 20210129
  Transmission Date: 20210419
  Serious: Yes (Death)
  Sender: FDA-Public Use
  Company Number: FR-DSJP-DSE-2021-100537

PATIENT
  Sex: Female

DRUGS (1)
  1. ENHERTU [Suspect]
     Active Substance: FAM-TRASTUZUMAB DERUXTECAN-NXKI
     Indication: HER2 POSITIVE BREAST CANCER
     Dosage: UNK, CYCLIC (ONE PER 21 DAY CYCLE)
     Route: 042
     Dates: start: 20201109, end: 20201109

REACTIONS (3)
  - Neurological decompensation [Fatal]
  - General physical condition abnormal [Fatal]
  - Weight decreased [Unknown]
